FAERS Safety Report 12453760 (Version 1)
Quarter: 2016Q2

REPORT INFORMATION
  Report Type: Spontaneous
  Country: FR (occurrence: FR)
  Receive Date: 20160609
  Receipt Date: 20160609
  Transmission Date: 20160815
  Serious: Yes (Hospitalization)
  Sender: FDA-Public Use
  Company Number: FR-BAUSCH-BL-2016-013372

PATIENT
  Age: 58 Year
  Sex: Female

DRUGS (7)
  1. DEXAMETHASONE. [Suspect]
     Active Substance: DEXAMETHASONE
     Indication: LEIOMYOSARCOMA
     Route: 042
     Dates: start: 20160127
  2. DEXAMETHASONE. [Suspect]
     Active Substance: DEXAMETHASONE
     Indication: METASTASES TO LUNG
  3. YONDELIS [Suspect]
     Active Substance: TRABECTEDIN
     Indication: METASTASES TO LUNG
  4. ALOXI [Suspect]
     Active Substance: PALONOSETRON HYDROCHLORIDE
     Indication: PRODUCT USED FOR UNKNOWN INDICATION
     Dosage: 0.25MG/5 ML
     Route: 042
     Dates: start: 20160127, end: 20160127
  5. TAZOCILLINE [Suspect]
     Active Substance: PIPERACILLIN SODIUM\TAZOBACTAM SODIUM
     Indication: PRODUCT USED FOR UNKNOWN INDICATION
     Route: 042
     Dates: start: 20160114, end: 20160129
  6. YONDELIS [Suspect]
     Active Substance: TRABECTEDIN
     Indication: LEIOMYOSARCOMA
     Route: 042
     Dates: start: 20160127, end: 20160127
  7. LASILIX [Concomitant]
     Active Substance: FUROSEMIDE
     Indication: PRODUCT USED FOR UNKNOWN INDICATION
     Dates: start: 20160123

REACTIONS (2)
  - Rash maculo-papular [Recovered/Resolved]
  - Pruritus [Recovered/Resolved]

NARRATIVE: CASE EVENT DATE: 20160201
